FAERS Safety Report 24005158 (Version 1)
Quarter: 2024Q2

REPORT INFORMATION
  Report Type: Spontaneous
  Country: US (occurrence: None)
  Receive Date: 20240621
  Receipt Date: 20240621
  Transmission Date: 20240716
  Serious: Yes (Other)
  Sender: FDA-Public Use
  Company Number: None

PATIENT
  Age: 64 Year
  Sex: Female

DRUGS (1)
  1. BRUKINSA [Suspect]
     Active Substance: ZANUBRUTINIB
     Indication: Chronic lymphocytic leukaemia
     Dosage: 1 DF DOSAGE FORM TWICE A DY ORAL
     Route: 048
     Dates: start: 20220201, end: 20231001

REACTIONS (3)
  - Rash [None]
  - Alopecia [None]
  - Nausea [None]

NARRATIVE: CASE EVENT DATE: 20240620
